FAERS Safety Report 25861507 (Version 1)
Quarter: 2025Q3

REPORT INFORMATION
  Report Type: Spontaneous
  Country: EU (occurrence: EU)
  Receive Date: 20250930
  Receipt Date: 20250930
  Transmission Date: 20251021
  Serious: Yes (Life-Threatening)
  Sender: ROCHE
  Company Number: None

PATIENT
  Age: 32 Year
  Sex: Female

DRUGS (3)
  1. MABTHERA [Suspect]
     Active Substance: RITUXIMAB
     Indication: Relapsing-remitting multiple sclerosis
     Dosage: 10 MG/ML
     Route: 042
     Dates: start: 20181010, end: 20230913
  2. RITUXIMAB [Suspect]
     Active Substance: RITUXIMAB
     Indication: Relapsing-remitting multiple sclerosis
     Dosage: LAST INFUSION ON 13/SEP/2024. CONTINUED USE OF MEDICINAL PRODUCT
     Route: 042
     Dates: start: 20230913
  3. CHOLECALCIFEROL [Concomitant]
     Active Substance: CHOLECALCIFEROL
     Indication: Vitamin D deficiency
     Route: 065

REACTIONS (7)
  - Breast cancer metastatic [Recovering/Resolving]
  - Breast pain [Recovering/Resolving]
  - Breast mass [Recovering/Resolving]
  - Breast cancer stage IV [Recovering/Resolving]
  - Metastases to liver [Recovering/Resolving]
  - Metastases to bone [Recovering/Resolving]
  - Off label use [Unknown]

NARRATIVE: CASE EVENT DATE: 20250401
